FAERS Safety Report 23397061 (Version 1)
Quarter: 2024Q1

REPORT INFORMATION
  Report Type: Spontaneous
  Country: US (occurrence: None)
  Receive Date: 20240112
  Receipt Date: 20240112
  Transmission Date: 20240410
  Serious: Yes (Hospitalization)
  Sender: FDA-Public Use
  Company Number: None

PATIENT
  Sex: Female

DRUGS (3)
  1. CUVITRU [Suspect]
     Active Substance: HUMAN IMMUNOGLOBULIN G
     Indication: Immunodeficiency
     Dosage: 10 GM/50ML SUBCUTANEOUS??WITHDRAW 70 ML INTO TWO 50ML SYRINGES. INFUSE 70 ML (14 GM) SUBCUTANEOUSLY
     Route: 058
     Dates: start: 20201216
  2. CUVITRU [Suspect]
     Active Substance: HUMAN IMMUNOGLOBULIN G
     Dosage: FREQUENCY : AS DIRECTED;?
     Route: 058
  3. EPINEPHRINE [Concomitant]
     Active Substance: EPINEPHRINE

REACTIONS (2)
  - Migraine [None]
  - Therapy interrupted [None]
